FAERS Safety Report 6734492-X (Version None)
Quarter: 2010Q2

REPORT INFORMATION
  Report Type: 
  Country: None (occurrence: None)
  Receive Date: 20100520
  Receipt Date: 20100506
  Transmission Date: 20101027
  Serious: Yes (Hospitalization)
  Sender: FDA-Public Use
  Company Number: US-ELI_LILLY_AND_COMPANY-US201005002766

PATIENT
  Sex: Female

DRUGS (11)
  1. FORTEO [Suspect]
     Indication: OSTEOPOROSIS
     Dosage: 20 UG, DAILY (1/D)
     Dates: start: 20100302
  2. NEURONTIN [Concomitant]
  3. LORTAB [Concomitant]
  4. THEOPHYLLINE [Concomitant]
  5. SPIRIVA [Concomitant]
  6. SYMBICORT [Concomitant]
  7. KLONOPIN [Concomitant]
  8. REMERON [Concomitant]
  9. SEROQUEL [Concomitant]
  10. VITAMIN D [Concomitant]
  11. CALCIUM [Concomitant]

REACTIONS (4)
  - BRONCHITIS [None]
  - CHRONIC OBSTRUCTIVE PULMONARY DISEASE [None]
  - MUSCLE SPASMS [None]
  - PNEUMONIA [None]
